FAERS Safety Report 4311703-1 (Version None)
Quarter: 2004Q1

REPORT INFORMATION
  Report Type: 
  Country: None (occurrence: None)
  Receive Date: 20040302
  Receipt Date: 20040112
  Transmission Date: 20041129
  Serious: No
  Sender: FDA-Public Use
  Company Number: 200411398BWH

PATIENT
  Age: 71 Year
  Sex: Female
  Weight: 68.0396 kg

DRUGS (2)
  1. LEVITRA [Suspect]
     Dosage: 10 MG, ONCE
     Route: 048
     Dates: start: 20030101
  2. MULTIVITAMIN [Concomitant]

REACTIONS (1)
  - NO ADVERSE DRUG EFFECT [None]
